FAERS Safety Report 19048676 (Version 2)
Quarter: 2021Q3

REPORT INFORMATION
  Report Type: Report from Study
  Country: US (occurrence: US)
  Receive Date: 20210323
  Receipt Date: 20210716
  Transmission Date: 20211014
  Serious: Yes (Other)
  Sender: FDA-Public Use
  Company Number: US-BAYER-2021-026188

PATIENT
  Age: 69 Year
  Sex: Male

DRUGS (3)
  1. STIVARGA [Suspect]
     Active Substance: REGORAFENIB
     Indication: GASTROINTESTINAL STROMAL TUMOUR
     Dosage: 160 MG, QD  FOR 21 DAYS ON, 7 DAYS OFF
     Route: 048
     Dates: start: 20201231
  2. STIVARGA [Suspect]
     Active Substance: REGORAFENIB
     Indication: GASTROINTESTINAL STROMAL TUMOUR
     Dosage: 160 MG, QD FOR 21 DAYS, OFF 7 DAYS
     Route: 048
     Dates: start: 20210104
  3. STIVARGA [Suspect]
     Active Substance: REGORAFENIB
     Indication: GASTROINTESTINAL STROMAL TUMOUR
     Dosage: 160 MG DAILY  FOR 21 DAYS ON, 7 DAYS OFF
     Route: 048
     Dates: start: 20201231

REACTIONS (6)
  - Skin exfoliation [Recovering/Resolving]
  - Blood pressure abnormal [None]
  - Emergency care [None]
  - Skin exfoliation [Unknown]
  - Diarrhoea [Unknown]
  - Dry skin [Unknown]

NARRATIVE: CASE EVENT DATE: 202101
